FAERS Safety Report 9162589 (Version 1)
Quarter: 2013Q1

REPORT INFORMATION
  Report Type: Spontaneous
  Country: None (occurrence: None)
  Receive Date: 20130222
  Receipt Date: 20130222
  Transmission Date: 20140127
  Serious: Yes (Other)
  Sender: FDA-Public Use
  Company Number: SYM-2013-00642

PATIENT
  Age: 83 Year
  Sex: Female

DRUGS (8)
  1. WELLBUTRIN (BUPROPION HYDROCHLORIDE) (TABLETS) (BUPROPION HYDROCHLORIDE) [Suspect]
     Indication: PRODUCT USED FOR UNKNOWN INDICATION
     Route: 048
     Dates: start: 20121022, end: 20130122
  2. TRAZONDONE HYDROCHLORIDE (TRAZODONE HYDROCHLORIDE) (UNKNOWN) (TRAZODONE HYDROCHLORIDE) [Suspect]
     Indication: PRODUCT USED FOR UNKNOWN INDICATION
     Route: 048
     Dates: start: 20121022, end: 20130122
  3. FRUSEMIDE (FUROSEMIDE) (UNKNOWN) (FUROSEMIDE) [Concomitant]
  4. RUPATADINE FUMARATE (RUPATADINE FUMARATE) (UNKNOWN) (RUPATADINE FUMARATE) [Concomitant]
  5. PANTOPRAZOLE (PANTOPRAZOLE) (UNKNOWN) (PANTOPRAZOLE) [Concomitant]
  6. ASPIRIN (ACETYLSALICYLIC ACID) (UNKNOWN) (ACETYLSALICYLIC ACID) [Concomitant]
  7. PREDNISONE (PREDNISONE) (UNKNOWN) (PREDNISONE) [Concomitant]
  8. CALCIUM CARBONATE (CALCIUM CARBONATE) (UNKNOWN) (CALCIUM CARBONATE) [Concomitant]

REACTIONS (1)
  - Loss of consciousness [None]
